FAERS Safety Report 7893908-6 (Version None)
Quarter: 2011Q4

REPORT INFORMATION
  Report Type: 
  Country: None (occurrence: None)
  Receive Date: 20111104
  Receipt Date: 20111102
  Transmission Date: 20120403
  Serious: Yes (Hospitalization)
  Sender: FDA-Public Use
  Company Number: FR-PFIZER INC-FR-WYE-G05416210

PATIENT
  Age: 56 Year
  Sex: Male

DRUGS (16)
  1. CLARITHROMYCIN [Suspect]
     Indication: PNEUMONIA LEGIONELLA
     Dosage: 1 G TOTAL DAILY
     Route: 042
     Dates: start: 20080629, end: 20080714
  2. LOVENOX [Suspect]
     Dosage: 1 DOSAGE FORM TOTAL DAILY
     Route: 058
     Dates: start: 20080705
  3. PIPERACILLIN AND TAZOBACTAM [Suspect]
     Indication: LUNG INFECTION
     Dosage: 16 G TOTAL DAILY
     Route: 042
     Dates: start: 20080707, end: 20080711
  4. CIPROFLOXACIN [Suspect]
     Indication: PNEUMONIA LEGIONELLA
     Dosage: 3 DOSAGE FORMS TOTAL DAILY
     Route: 042
     Dates: start: 20080702, end: 20080704
  5. TIENAM [Suspect]
     Indication: LUNG INFECTION
     Dosage: 3 DOSAGES FORM
     Route: 048
     Dates: start: 20080718
  6. ROCEPHIN [Suspect]
     Indication: PNEUMONIA LEGIONELLA
     Dosage: 4 G; FREQUENCY UNSPECIFIED
     Route: 042
     Dates: start: 20080629, end: 20080702
  7. MOXIFLOXACIN HCL [Suspect]
     Indication: PNEUMONIA LEGIONELLA
     Dosage: 400 MG, 1X/DAY
     Route: 042
     Dates: start: 20080629, end: 20080702
  8. SUCRALFATE [Concomitant]
     Dosage: UNK
     Route: 048
     Dates: start: 20080630, end: 20080716
  9. LEVOFLOXACIN [Suspect]
     Indication: PNEUMONIA LEGIONELLA
     Dosage: 10 MG TOTAL DAILY
     Route: 042
     Dates: start: 20080703
  10. VENOFER [Suspect]
     Dosage: 300 MG TOTAL DAILY
     Route: 042
     Dates: start: 20080711
  11. ZYVOX [Suspect]
     Dosage: 3 DOSAGES FORM TOTAL DAILY
     Route: 048
     Dates: start: 20080714
  12. DESLORATADINE [Suspect]
     Dosage: 1.0 DF, 1X/DAY
     Route: 048
     Dates: start: 20080709
  13. NUTRIFLEX ^VIFOR^ [Suspect]
     Dosage: UNKNOWN
     Route: 042
  14. ACETAMINOPHEN [Suspect]
     Dosage: 4 DOSAGES FORM TOTAL DAILY
     Route: 048
     Dates: start: 20080718
  15. ACETAMINOPHEN [Suspect]
     Dosage: 40 MG TOTAL DAILY
     Route: 042
     Dates: start: 20080629, end: 20080717
  16. OMEPRAZOLE [Suspect]
     Dosage: 1 DF, 1X/DAY
     Route: 048
     Dates: start: 20080717

REACTIONS (5)
  - GAMMA-GLUTAMYLTRANSFERASE INCREASED [None]
  - CONDITION AGGRAVATED [None]
  - CYTOLYTIC HEPATITIS [None]
  - BLOOD BILIRUBIN INCREASED [None]
  - RASH PRURITIC [None]
